FAERS Safety Report 4925879-6 (Version None)
Quarter: 2006Q1

REPORT INFORMATION
  Report Type: 
  Country: None (occurrence: None)
  Receive Date: 20060228
  Receipt Date: 20050407
  Transmission Date: 20060701
  Serious: No
  Sender: FDA-Public Use
  Company Number: US-GLAXOSMITHKLINE-A0553246A

PATIENT
  Sex: Male

DRUGS (2)
  1. LAMICTAL [Suspect]
     Indication: EPILEPSY
     Dosage: 600MG PER DAY
     Route: 048
  2. MYSOLINE [Concomitant]
     Indication: ESSENTIAL TREMOR
     Dosage: 500MG PER DAY

REACTIONS (1)
  - RASH [None]
